FAERS Safety Report 18724697 (Version 1)
Quarter: 2021Q1

REPORT INFORMATION
  Report Type: Spontaneous
  Country: FR (occurrence: FR)
  Receive Date: 20210111
  Receipt Date: 20210111
  Transmission Date: 20210419
  Serious: Yes (Death, Other)
  Sender: FDA-Public Use
  Company Number: FR-PFIZER INC-2021013739

PATIENT
  Age: 63 Year
  Sex: Female
  Weight: 55 kg

DRUGS (8)
  1. ERYTHROMYCINE [ERYTHROMYCIN] [Concomitant]
     Active Substance: ERYTHROMYCIN
     Dosage: 250 MILLIGRAM, QD
     Route: 042
     Dates: start: 20201002
  2. CALCIDOSE [CALCIUM CARBONATE;COLECALCIFEROL] [Concomitant]
     Active Substance: CALCIUM CARBONATE\CHOLECALCIFEROL
     Dosage: UNK UNK, QD
     Route: 048
     Dates: start: 20201007, end: 20201027
  3. PANTOPRAZOLE [Suspect]
     Active Substance: PANTOPRAZOLE
     Indication: OESOPHAGEAL VARICES HAEMORRHAGE
     Dosage: 80 MILLIGRAM, QD
     Route: 048
     Dates: start: 20200929, end: 20201027
  4. PROPRANOLOL [Suspect]
     Active Substance: PROPRANOLOL HYDROCHLORIDE
     Indication: OESOPHAGEAL VARICES HAEMORRHAGE
     Dosage: 160 MILLIGRAM, QD
     Route: 048
     Dates: start: 20200927, end: 20201027
  5. BECILAN [Concomitant]
     Active Substance: PYRIDOXINE
     Dosage: 500 MILLIGRAM, QD
     Route: 048
     Dates: start: 20201006, end: 20201027
  6. SOMATOSTATINE [SOMATOSTATIN] [Concomitant]
     Active Substance: SOMATOSTATIN
     Dosage: UNK
     Route: 042
     Dates: start: 20200923, end: 20200927
  7. SOLUPRED [PREDNISOLONE METASULFOBENZOATE SODIUM] [Concomitant]
     Active Substance: PREDNISOLONE SODIUM METAZOATE
     Dosage: 40 MILLIGRAM, QD
     Route: 048
     Dates: start: 20200930, end: 20201027
  8. BEVITINE [Concomitant]
     Active Substance: THIAMINE HYDROCHLORIDE
     Dosage: 500 MILLIGRAM, QD
     Route: 048
     Dates: start: 20201006, end: 20201027

REACTIONS (1)
  - SJS-TEN overlap [Fatal]

NARRATIVE: CASE EVENT DATE: 20201024
